FAERS Safety Report 16840345 (Version 1)
Quarter: 2019Q3

REPORT INFORMATION
  Report Type: Spontaneous
  Country: ES (occurrence: ES)
  Receive Date: 20190923
  Receipt Date: 20190923
  Transmission Date: 20191005
  Serious: Yes (Other)
  Sender: FDA-Public Use
  Company Number: ES-PFIZER INC-2019403807

PATIENT
  Age: 80 Year
  Sex: Male

DRUGS (1)
  1. TOVIAZ [Suspect]
     Active Substance: FESOTERODINE FUMARATE
     Indication: MUSCLE SPASMS
     Dosage: 4 MG, 1X/DAY
     Route: 048
     Dates: start: 20190912, end: 20190917

REACTIONS (9)
  - Lip neoplasm [Unknown]
  - Drug ineffective for unapproved indication [Unknown]
  - Lip swelling [Recovering/Resolving]
  - Dysphagia [Unknown]
  - Flatulence [Unknown]
  - Off label use [Unknown]
  - Nasal dryness [Unknown]
  - Dry throat [Unknown]
  - Tumour pain [Unknown]

NARRATIVE: CASE EVENT DATE: 201909
